FAERS Safety Report 4822650-0 (Version None)
Quarter: 2005Q4

REPORT INFORMATION
  Report Type: 
  Country: None (occurrence: None)
  Receive Date: 20051107
  Receipt Date: 20051107
  Transmission Date: 20060501
  Serious: Yes (Other)
  Sender: FDA-Public Use
  Company Number: None

PATIENT
  Sex: Female
  Weight: 102.9 kg

DRUGS (2)
  1. TEMOZOLOMIDE [Suspect]
     Indication: ANAPLASTIC ASTROCYTOMA
     Dosage: SEE IMAGE
     Dates: start: 20051003, end: 20051007
  2. TEMOZOLOMIDE [Suspect]
     Indication: ANAPLASTIC ASTROCYTOMA
     Dosage: SEE IMAGE
     Dates: start: 20051031

REACTIONS (1)
  - NO ADVERSE EFFECT [None]
